FAERS Safety Report 17810361 (Version 2)
Quarter: 2020Q2

REPORT INFORMATION
  Report Type: Spontaneous
  Country: DE (occurrence: DE)
  Receive Date: 20200520
  Receipt Date: 20200609
  Transmission Date: 20200714
  Serious: Yes (Other)
  Sender: FDA-Public Use
  Company Number: DE-LUNDBECK-DKLU3016501

PATIENT
  Age: 1 Month
  Sex: Male

DRUGS (4)
  1. LEVETIRACETAM. [Suspect]
     Active Substance: LEVETIRACETAM
     Indication: SEIZURE
     Route: 065
  2. EVEROLIMUS. [Suspect]
     Active Substance: EVEROLIMUS
     Indication: ASTROCYTOMA, LOW GRADE
     Dosage: 0.03 MG/M2, Q12H
     Route: 048
  3. VIGABATRIN (FOR ORAL SOLUTION) [Suspect]
     Active Substance: VIGABATRIN
     Indication: SEIZURE
     Route: 065
  4. EVEROLIMUS. [Suspect]
     Active Substance: EVEROLIMUS
     Indication: TUBEROUS SCLEROSIS COMPLEX

REACTIONS (2)
  - Neutropenia [Recovered/Resolved]
  - Urinary tract infection [Unknown]
